FAERS Safety Report 24222620 (Version 1)
Quarter: 2024Q3

REPORT INFORMATION
  Report Type: Report from Study
  Country: CA (occurrence: CA)
  Receive Date: 20240819
  Receipt Date: 20240819
  Transmission Date: 20241017
  Serious: Yes (Other)
  Sender: INCYTE
  Company Number: CA-INCYTE CORPORATION-2023IN001068

PATIENT

DRUGS (8)
  1. TAFASITAMAB [Suspect]
     Active Substance: TAFASITAMAB
     Indication: Diffuse large B-cell lymphoma
     Dosage: 200 MILLIGRAM (CYCLE 1 (5 INFUSIONS))
     Route: 042
     Dates: start: 20230105
  2. TAFASITAMAB [Suspect]
     Active Substance: TAFASITAMAB
     Dosage: 12 MILLIGRAM/KILOGRAM, WEEKLY
     Route: 042
     Dates: start: 20230123
  3. TAFASITAMAB [Suspect]
     Active Substance: TAFASITAMAB
     Dosage: 200 MILLIGRAM (CYCLE 2 (4 INFUSIONS)
     Route: 042
     Dates: start: 20230123
  4. TAFASITAMAB [Suspect]
     Active Substance: TAFASITAMAB
     Dosage: 200 MILLIGRAM (CYCLE 3 (4 INFUSIONS)
     Route: 042
     Dates: start: 20230123
  5. TAFASITAMAB [Suspect]
     Active Substance: TAFASITAMAB
     Dosage: 200 MILLIGRAM, CYCLE 4 (2 INFUSIONS)
     Route: 042
     Dates: start: 20230123
  6. TAFASITAMAB [Suspect]
     Active Substance: TAFASITAMAB
     Dosage: 200 MILLIGRAM, AS PER PRODUCT MONOGRAPH
     Route: 042
     Dates: start: 20230418
  7. TAFASITAMAB [Suspect]
     Active Substance: TAFASITAMAB
     Dosage: 200 MILLIGRAM AS PER PM SCHEDULE
     Route: 042
     Dates: start: 20230123
  8. TYLENOL [Concomitant]
     Active Substance: ACETAMINOPHEN
     Indication: Pyrexia
     Dosage: 975 MILLIGRAM
     Route: 065

REACTIONS (5)
  - Cytopenia [Not Recovered/Not Resolved]
  - Neutropenia [Not Recovered/Not Resolved]
  - Full blood count decreased [Not Recovered/Not Resolved]
  - Inappropriate schedule of product administration [Unknown]
  - Urinary tract infection [Unknown]
